FAERS Safety Report 18381248 (Version 1)
Quarter: 2020Q4

REPORT INFORMATION
  Report Type: Spontaneous
  Country: CN (occurrence: CN)
  Receive Date: 20201014
  Receipt Date: 20201014
  Transmission Date: 20210114
  Serious: Yes (Death, Life-Threatening, Other)
  Sender: FDA-Public Use
  Company Number: CN-LUPIN PHARMACEUTICALS INC.-2020-07284

PATIENT

DRUGS (4)
  1. AZITHROMYCIN ANHYDROUS. [Suspect]
     Active Substance: AZITHROMYCIN ANHYDROUS
     Indication: LISTERIOSIS
     Dosage: UNK
     Route: 064
  2. CLINDAMYCIN. [Suspect]
     Active Substance: CLINDAMYCIN
     Indication: LISTERIOSIS
     Dosage: UNK
     Route: 064
  3. PENICILLIN-G [Suspect]
     Active Substance: PENICILLIN G
     Indication: LISTERIOSIS
     Dosage: UNK
     Route: 064
  4. CEFTRIAXONE. [Suspect]
     Active Substance: CEFTRIAXONE
     Indication: LISTERIOSIS
     Dosage: UNK
     Route: 064

REACTIONS (6)
  - Hyperlactacidaemia [Unknown]
  - Foetal exposure during pregnancy [Unknown]
  - Death [Fatal]
  - Neonatal respiratory distress syndrome [Unknown]
  - Low birth weight baby [Unknown]
  - Premature baby [Unknown]
